FAERS Safety Report 11906375 (Version 1)
Quarter: 2016Q1

REPORT INFORMATION
  Report Type: Spontaneous
  Country: US (occurrence: None)
  Receive Date: 20160108
  Receipt Date: 20160108
  Transmission Date: 20160526
  Serious: No
  Sender: FDA-Public Use
  Company Number: None

PATIENT
  Age: 30 Year
  Sex: Female

DRUGS (1)
  1. MAKENA [Suspect]
     Active Substance: HYDROXYPROGESTERONE CAPROATE
     Indication: THREATENED LABOUR
     Route: 030
     Dates: start: 20151027

REACTIONS (2)
  - Gestational diabetes [None]
  - Maternal exposure during pregnancy [None]

NARRATIVE: CASE EVENT DATE: 20160107
